FAERS Safety Report 5837673-2 (Version None)
Quarter: 2008Q3

REPORT INFORMATION
  Report Type: 
  Country: None (occurrence: None)
  Receive Date: 20080807
  Receipt Date: 20080728
  Transmission Date: 20090109
  Serious: Yes (Other)
  Sender: FDA-Public Use
  Company Number: DE-AMGEN-UK285411

PATIENT
  Sex: Female
  Weight: 58 kg

DRUGS (2)
  1. NEULASTA [Suspect]
     Indication: CHEMOTHERAPY
     Route: 058
     Dates: start: 20080604, end: 20080604
  2. DOXORUBICIN HCL [Concomitant]
     Route: 042
     Dates: start: 20080603, end: 20080603

REACTIONS (3)
  - ABDOMINAL PAIN UPPER [None]
  - BONE PAIN [None]
  - LEUKOCYTOSIS [None]
